FAERS Safety Report 25523698 (Version 1)
Quarter: 2025Q3

REPORT INFORMATION
  Report Type: Spontaneous
  Country: CN (occurrence: CN)
  Receive Date: 20250707
  Receipt Date: 20250707
  Transmission Date: 20251020
  Serious: Yes (Other)
  Sender: SANOFI AVENTIS
  Company Number: CN-SA-2025SA186557

PATIENT
  Age: 53 Year
  Sex: Male
  Weight: 56.3 kg

DRUGS (7)
  1. INSULIN GLARGINE [Suspect]
     Active Substance: INSULIN GLARGINE
     Indication: Diabetes mellitus
     Dosage: 14 U, QD
     Route: 058
     Dates: start: 20250617, end: 20250617
  2. INSULIN GLARGINE [Suspect]
     Active Substance: INSULIN GLARGINE
     Dosage: 12 U, QD
     Route: 058
     Dates: start: 20250618, end: 20250624
  3. INSULIN ASPART [Suspect]
     Active Substance: INSULIN ASPART
     Indication: Diabetes mellitus
     Dosage: 3 U TID SC WAS GRADUALLY ADJUSTED TO INSULIN ASPART INJECTION 10 U IN THE MORNING, 9 U AT NOON AND 9
     Route: 058
     Dates: start: 20250609, end: 20250619
  4. INSULIN ASPART [Suspect]
     Active Substance: INSULIN ASPART
     Dosage: 9 U, TID
     Route: 058
     Dates: start: 20250620, end: 20250623
  5. INSULIN ASPART [Suspect]
     Active Substance: INSULIN ASPART
     Dosage: 10 U IN THE MORNING, 9 U AT NOON AND 9 U
     Route: 058
     Dates: start: 20250623, end: 20250624
  6. INSULIN ASPART [Suspect]
     Active Substance: INSULIN ASPART
     Dosage: 9 U, BID (INSULIN ASPART INJECTION HAD BEEN RECEIVED ON THE MORNING AND NOON OF JUNE 25, WHILE THE D
     Route: 058
     Dates: start: 20250625, end: 20250625
  7. INSULIN ASPART [Suspect]
     Active Substance: INSULIN ASPART
     Route: 058
     Dates: start: 20250625

REACTIONS (3)
  - Oedema peripheral [Recovered/Resolved]
  - Pain in extremity [Recovered/Resolved]
  - Peripheral swelling [Recovered/Resolved]

NARRATIVE: CASE EVENT DATE: 20250620
